FAERS Safety Report 19294939 (Version 1)
Quarter: 2021Q2

REPORT INFORMATION
  Report Type: Spontaneous
  Country: EG (occurrence: EG)
  Receive Date: 20210524
  Receipt Date: 20210524
  Transmission Date: 20210717
  Serious: Yes (Other)
  Sender: FDA-Public Use
  Company Number: NVSC2021EG111412

PATIENT
  Age: 71 Year
  Sex: Female
  Weight: 105 kg

DRUGS (2)
  1. TYKERB [Suspect]
     Active Substance: LAPATINIB DITOSYLATE
     Dosage: 4 DF, QD
     Route: 065
  2. TYKERB [Suspect]
     Active Substance: LAPATINIB DITOSYLATE
     Indication: BREAST CANCER
     Dosage: 6 DF, QD
     Route: 048
     Dates: start: 20200820, end: 20201031

REACTIONS (2)
  - Renal impairment [Recovered/Resolved]
  - Motor neurone disease [Recovered/Resolved]

NARRATIVE: CASE EVENT DATE: 202010
